FAERS Safety Report 4445337-5 (Version None)
Quarter: 2004Q3

REPORT INFORMATION
  Report Type: 
  Country: None (occurrence: None)
  Receive Date: 20040903
  Receipt Date: 20040819
  Transmission Date: 20050211
  Serious: Yes (Hospitalization)
  Sender: FDA-Public Use
  Company Number: 04P-056-0271188-00

PATIENT
  Age: 21 Year
  Sex: Female

DRUGS (10)
  1. HUMIRA [Suspect]
     Indication: CROHN'S DISEASE
     Dosage: SUBCUTANEOUS
     Route: 058
     Dates: start: 20040507, end: 20040818
  2. PENTASA [Concomitant]
  3. BUDESONIDE [Concomitant]
  4. AZATHIOPRINE [Concomitant]
  5. INFLIXIMAB [Concomitant]
  6. RIFAMPIN AND ISONIAZID [Concomitant]
  7. METOCLOPRAMIDE [Concomitant]
  8. BETAMETHASONE DIPROPIONATE [Concomitant]
  9. PREDNISOLONE SODIUM PHOSPHATE [Concomitant]
  10. PARACETAMOL [Concomitant]

REACTIONS (3)
  - DRUG EXPOSURE DURING PREGNANCY [None]
  - ECTOPIC PREGNANCY [None]
  - HAEMORRHAGE [None]
